FAERS Safety Report 6620920-7 (Version None)
Quarter: 2010Q1

REPORT INFORMATION
  Report Type: 
  Country: None (occurrence: None)
  Receive Date: 20100309
  Receipt Date: 20100222
  Transmission Date: 20100710
  Serious: Yes (Hospitalization, Other)
  Sender: FDA-Public Use
  Company Number: US-PFIZER INC-2010023788

PATIENT
  Sex: Male
  Weight: 71 kg

DRUGS (5)
  1. CHANTIX [Suspect]
     Indication: SMOKING CESSATION THERAPY
     Dosage: 0.5 MG, UNK
     Route: 048
     Dates: start: 20081219, end: 20090101
  2. PREDNISONE [Concomitant]
     Dosage: UNK
  3. ACYCLOVIR [Concomitant]
     Dosage: UNK
  4. FEMARA [Concomitant]
     Dosage: UNK
  5. LEFLUNOMIDE [Concomitant]
     Dosage: UNK

REACTIONS (3)
  - CEREBROVASCULAR ACCIDENT [None]
  - MALAISE [None]
  - STOMATITIS [None]
